FAERS Safety Report 10237781 (Version 1)
Quarter: 2014Q2

REPORT INFORMATION
  Report Type: Spontaneous
  Country: NL (occurrence: NL)
  Receive Date: 20140616
  Receipt Date: 20140616
  Transmission Date: 20141212
  Serious: Yes (Hospitalization)
  Sender: FDA-Public Use
  Company Number: NL-ROCHE-1418433

PATIENT
  Age: 66 Year
  Sex: Female
  Weight: 68 kg

DRUGS (3)
  1. BONVIVA [Suspect]
     Indication: OSTEOPOROSIS
     Route: 048
     Dates: start: 20130815, end: 20140109
  2. LOSARTAN [Concomitant]
     Route: 048
     Dates: start: 2008
  3. LEVOTHYROXINE [Concomitant]
     Route: 048
     Dates: start: 2008

REACTIONS (1)
  - Femur fracture [Recovering/Resolving]
